FAERS Safety Report 5447347-8 (Version None)
Quarter: 2007Q3

REPORT INFORMATION
  Report Type: 
  Country: None (occurrence: None)
  Receive Date: 20070905
  Receipt Date: 20070905
  Transmission Date: 20080115
  Serious: No
  Sender: FDA-Public Use
  Company Number: None

PATIENT
  Age: 65 Year
  Sex: Female
  Weight: 79.3795 kg

DRUGS (13)
  1. LEUKINE [Suspect]
     Indication: NEUTROPENIA
     Dosage: 450 MCG DAILY X 7-10 DAY SC
     Route: 058
     Dates: start: 20070626
  2. LEUKINE [Suspect]
     Indication: PROPHYLAXIS
     Dosage: 450 MCG DAILY X 7-10 DAY SC
     Route: 058
     Dates: start: 20070626
  3. LEUKINE [Suspect]
     Indication: NEUTROPENIA
     Dosage: 450 MCG DAILY X 7-10 DAY SC
     Route: 058
     Dates: start: 20070717
  4. LEUKINE [Suspect]
     Indication: PROPHYLAXIS
     Dosage: 450 MCG DAILY X 7-10 DAY SC
     Route: 058
     Dates: start: 20070717
  5. LOXIOINE [Concomitant]
  6. CLONAZEPNE [Concomitant]
  7. BENZOTROPINE [Concomitant]
  8. CHANTIX [Concomitant]
  9. COLACE [Concomitant]
  10. RANITIDINE [Concomitant]
  11. LORTAB [Concomitant]
  12. VITAMIN CAP [Concomitant]
  13. CALCIUM [Concomitant]

REACTIONS (8)
  - ASTHENIA [None]
  - DYSPNOEA [None]
  - FALL [None]
  - FLUSHING [None]
  - HEART RATE INCREASED [None]
  - HYPERTHERMIA [None]
  - ORTHOSTATIC HYPOTENSION [None]
  - SYNCOPE [None]
